FAERS Safety Report 25136551 (Version 1)
Quarter: 2025Q1

REPORT INFORMATION
  Report Type: Spontaneous
  Country: US (occurrence: None)
  Receive Date: 20250328
  Receipt Date: 20250328
  Transmission Date: 20250409
  Serious: Yes (Hospitalization)
  Sender: FDA-CTU
  Company Number: None

PATIENT
  Age: 84 Year
  Sex: Male

DRUGS (2)
  1. ATORVASTATIN CALCIUM [Suspect]
     Active Substance: ATORVASTATIN CALCIUM
     Indication: Hyperlipidaemia
     Dates: start: 20240822, end: 20250116
  2. TURMERIC [Suspect]
     Active Substance: TURMERIC

REACTIONS (5)
  - Rhabdomyolysis [None]
  - Constipation [None]
  - COVID-19 [None]
  - Myositis [None]
  - Cough [None]

NARRATIVE: CASE EVENT DATE: 20250116
